FAERS Safety Report 14650591 (Version 1)
Quarter: 2018Q1

REPORT INFORMATION
  Report Type: Spontaneous
  Country: CA (occurrence: CA)
  Receive Date: 20180316
  Receipt Date: 20180316
  Transmission Date: 20180509
  Serious: Yes (Hospitalization)
  Sender: FDA-Public Use
  Company Number: CA-HLSUS-2018-CA-000441

PATIENT
  Age: 21 Year
  Sex: Male

DRUGS (7)
  1. ACETAMINOPHEN. [Concomitant]
     Active Substance: ACETAMINOPHEN
  2. LAX-A-DAY [Concomitant]
  3. LORAZEPAM. [Concomitant]
     Active Substance: LORAZEPAM
  4. MULTIVITAMIN [Concomitant]
     Active Substance: VITAMINS
  5. LOXAPINE. [Concomitant]
     Active Substance: LOXAPINE
  6. OLANZAPINE. [Concomitant]
     Active Substance: OLANZAPINE
  7. CLOZAPINE. [Suspect]
     Active Substance: CLOZAPINE
     Dosage: 175 MG
     Route: 048

REACTIONS (8)
  - Aspiration [Recovering/Resolving]
  - Pyrexia [Recovering/Resolving]
  - Hypotension [Recovering/Resolving]
  - Myocarditis [Recovering/Resolving]
  - Lung consolidation [Recovering/Resolving]
  - Tachycardia [Recovering/Resolving]
  - Viral myocarditis [Recovering/Resolving]
  - Pleural effusion [Recovering/Resolving]
